FAERS Safety Report 5680702-X (Version None)
Quarter: 2008Q1

REPORT INFORMATION
  Report Type: 
  Country: None (occurrence: None)
  Receive Date: 20080326
  Receipt Date: 20080320
  Transmission Date: 20080703
  Serious: Yes (Hospitalization)
  Sender: FDA-Public Use
  Company Number: US-ALLERGAN-0802518US

PATIENT
  Sex: Male

DRUGS (1)
  1. BLINDED BOTULINUM TOXIN TYPE A - GENERAL [Suspect]
     Indication: BENIGN PROSTATIC HYPERPLASIA
     Dosage: UNK, SINGLE
     Route: 050
     Dates: start: 20080227, end: 20080227

REACTIONS (3)
  - BACK PAIN [None]
  - TREMOR [None]
  - UROSEPSIS [None]
